FAERS Safety Report 16916517 (Version 4)
Quarter: 2019Q4

REPORT INFORMATION
  Report Type: Report from Study
  Country: US (occurrence: US)
  Receive Date: 20191014
  Receipt Date: 20191128
  Transmission Date: 20200122
  Serious: No
  Sender: FDA-Public Use
  Company Number: US-SHIRE-US201933565

PATIENT
  Sex: Female
  Weight: 52.15 kg

DRUGS (1)
  1. TEDUGLUTIDE [Suspect]
     Active Substance: TEDUGLUTIDE
     Indication: SHORT-BOWEL SYNDROME
     Dosage: 0.131 MILLILITER, 1X/DAY:QD
     Route: 050

REACTIONS (10)
  - Peripheral swelling [Not Recovered/Not Resolved]
  - Abdominal distension [Not Recovered/Not Resolved]
  - Night sweats [Not Recovered/Not Resolved]
  - Vomiting [Not Recovered/Not Resolved]
  - Flatulence [Not Recovered/Not Resolved]
  - Condition aggravated [Not Recovered/Not Resolved]
  - Malaise [Unknown]
  - Abdominal pain [Not Recovered/Not Resolved]
  - Drug ineffective [Unknown]
  - Pain [Not Recovered/Not Resolved]
